FAERS Safety Report 7796170-8 (Version None)
Quarter: 2011Q4

REPORT INFORMATION
  Report Type: 
  Country: None (occurrence: None)
  Receive Date: 20111004
  Receipt Date: 20110602
  Transmission Date: 20120403
  Serious: Yes (Other)
  Sender: FDA-Public Use
  Company Number: US-BAYER-2011-077853

PATIENT
  Age: 68 Year
  Sex: Male
  Weight: 84 kg

DRUGS (1)
  1. ASPIRIN [Suspect]
     Dosage: 1 - 2  UNITS, QD
     Route: 048
     Dates: start: 20070101

REACTIONS (2)
  - HYPOACUSIS [None]
  - TINNITUS [None]
